FAERS Safety Report 8200129-6 (Version None)
Quarter: 2012Q1

REPORT INFORMATION
  Report Type: 
  Country: None (occurrence: None)
  Receive Date: 20120309
  Receipt Date: 20120309
  Transmission Date: 20120608
  Serious: Yes (Disabling, Other)
  Sender: FDA-Public Use
  Company Number: None

PATIENT
  Sex: Female
  Weight: 64.4108 kg

DRUGS (1)
  1. TRI-LUMA [Suspect]
     Indication: CHLOASMA
     Dosage: SMALL AMOUNT ONCE
     Dates: start: 20090601, end: 20100101

REACTIONS (2)
  - SKIN HYPERTROPHY [None]
  - DEFORMITY [None]
